FAERS Safety Report 17935615 (Version 1)
Quarter: 2020Q2

REPORT INFORMATION
  Report Type: Spontaneous
  Country: PT (occurrence: PT)
  Receive Date: 20200624
  Receipt Date: 20200624
  Transmission Date: 20200714
  Serious: Yes (Other)
  Sender: FDA-Public Use
  Company Number: PT-UCBSA-123350

PATIENT
  Age: 9 Year
  Sex: Male
  Weight: 31 kg

DRUGS (4)
  1. DEPAKINE CHRONOSPHERE [Suspect]
     Active Substance: VALPROIC ACID
     Indication: EPILEPSY
     Dosage: 250 MG, 2X/DAY (BID)
     Route: 048
     Dates: start: 2013
  2. DEPAKINE CHRONOSPHERE [Suspect]
     Active Substance: VALPROIC ACID
     Dosage: 500 MG IN THE MORNING + 500 MG AT NIGHT (CORRESPONDING TO 4 SACHETS OF 250 MG / DAY); 500 MILLIGRAM,
     Route: 048
     Dates: end: 20140519
  3. DEPAKINE CHRONOSPHERE [Suspect]
     Active Substance: VALPROIC ACID
     Dosage: 500 MG, 2X/DAY (BID)
     Route: 048
     Dates: start: 20140519
  4. KEPPRA [Suspect]
     Active Substance: LEVETIRACETAM
     Indication: EPILEPSY
     Dosage: UNKNOWN DOSE
     Route: 048
     Dates: start: 2014

REACTIONS (5)
  - Depressive symptom [Not Recovered/Not Resolved]
  - Product residue present [Unknown]
  - Drug ineffective [Unknown]
  - Epilepsy [Not Recovered/Not Resolved]
  - Educational problem [Not Recovered/Not Resolved]

NARRATIVE: CASE EVENT DATE: 2014
